FAERS Safety Report 10457987 (Version 1)
Quarter: 2014Q3

REPORT INFORMATION
  Report Type: Report from Study
  Country: BR (occurrence: BR)
  Receive Date: 20140916
  Receipt Date: 20140916
  Transmission Date: 20150326
  Serious: Yes (Hospitalization, Other)
  Sender: FDA-Public Use
  Company Number: PHHY2014BR119708

PATIENT
  Sex: Female
  Weight: 57 kg

DRUGS (8)
  1. AZITROMICIN [Concomitant]
     Indication: INFECTION PROPHYLAXIS
     Dosage: 0.5 DF, DAILY
  2. CREON [Concomitant]
     Active Substance: PANCRELIPASE AMYLASE\PANCRELIPASE LIPASE\PANCRELIPASE PROTEASE
     Indication: PANCREATIC ENZYME ABNORMALITY
     Dosage: 3 TABLETS/2TABLETS, AT BIG MEALS/AT SMALL MEALS
  3. BUSONID [Concomitant]
     Active Substance: BUDESONIDE
     Indication: ANTIFUNGAL PROPHYLAXIS
     Dosage: 1 JET IN EACH NOSTRIL, DAILY
  4. VITAMINS NOS [Concomitant]
     Active Substance: VITAMINS
     Dosage: 1 DF, DAILY
  5. URSACOL [Concomitant]
     Active Substance: URSODIOL
     Indication: LIVER DISORDER
     Dosage: 2 DF, DAILY
  6. ZOTEON PODHALER [Suspect]
     Active Substance: TOBRAMYCIN
     Indication: LUNG INFECTION
     Dosage: 3 DF, QHS
  7. AVALOX [Concomitant]
     Active Substance: MOXIFLOXACIN HYDROCHLORIDE
     Indication: INFECTION PROPHYLAXIS
     Dosage: 1 DF, DAILY
  8. CALCORT [Concomitant]
     Active Substance: DEFLAZACORT
     Indication: BONE DISORDER
     Dosage: 1 DF, DAILY

REACTIONS (4)
  - Pseudomonas infection [Recovered/Resolved]
  - Sputum culture positive [Recovered/Resolved]
  - Total lung capacity decreased [Recovered/Resolved]
  - Spirometry abnormal [Recovered/Resolved]
